FAERS Safety Report 4975298-1 (Version None)
Quarter: 2006Q2

REPORT INFORMATION
  Report Type: 
  Country: None (occurrence: None)
  Receive Date: 20060418
  Receipt Date: 20051004
  Transmission Date: 20061013
  Serious: Yes (Hospitalization)
  Sender: FDA-Public Use
  Company Number: US-MERCK-0510USA03507

PATIENT
  Age: 73 Year
  Sex: Male
  Weight: 101 kg

DRUGS (3)
  1. VIOXX [Suspect]
     Indication: ARTHRITIS
     Route: 048
     Dates: start: 20030605
  2. VIOXX [Suspect]
     Route: 048
     Dates: start: 20030605
  3. ASPIRIN [Concomitant]
     Route: 065

REACTIONS (8)
  - ANGINA PECTORIS [None]
  - ARTERIOSCLEROSIS [None]
  - CARDIOVASCULAR DISORDER [None]
  - COUGH [None]
  - DYSPNOEA [None]
  - THROMBOSIS [None]
  - VIRAL INFECTION [None]
  - VOMITING [None]
